FAERS Safety Report 20709698 (Version 5)
Quarter: 2022Q2

REPORT INFORMATION
  Report Type: Report from Study
  Country: US (occurrence: US)
  Receive Date: 20220414
  Receipt Date: 20220528
  Transmission Date: 20220721
  Serious: Yes (Other)
  Sender: FDA-Public Use
  Company Number: US-NOVARTISTESTPH-NVSC2022US084639

PATIENT
  Sex: Male

DRUGS (1)
  1. ENTRESTO [Suspect]
     Active Substance: SACUBITRIL\VALSARTAN
     Indication: Product used for unknown indication
     Dosage: 1 DOSAGE FORM, BID
     Route: 048
     Dates: start: 20220321

REACTIONS (7)
  - Diabetes mellitus [Unknown]
  - Seasonal allergy [Unknown]
  - Fear [Unknown]
  - Blood glucose fluctuation [Unknown]
  - Blood sodium decreased [Unknown]
  - Presyncope [Unknown]
  - Dizziness postural [Unknown]
